FAERS Safety Report 4568355-5 (Version None)
Quarter: 2005Q1

REPORT INFORMATION
  Report Type: 
  Country: None (occurrence: None)
  Receive Date: 20050131
  Receipt Date: 20050114
  Transmission Date: 20050727
  Serious: Yes (Other)
  Sender: FDA-Public Use
  Company Number: GBR-2005-0001468

PATIENT
  Age: 69 Year
  Sex: Male

DRUGS (18)
  1. MORPHINE SULFATE [Suspect]
     Indication: ANALGESIC EFFECT
     Dosage: 20 MG, BD, ORAL
     Route: 048
     Dates: start: 20041213, end: 20041214
  2. OXYCONTIN [Suspect]
     Indication: ANALGESIC EFFECT
     Dosage: 15 MG, BID, ORAL
     Route: 048
     Dates: start: 20041214, end: 20041215
  3. ALLOPURINOL [Concomitant]
  4. ATENOLOL [Concomitant]
  5. ACETYLSALICYLIC ACID [Concomitant]
  6. CARBAMAZEPINE [Concomitant]
  7. TAMSULOSIN (TAMSULOSIN) [Concomitant]
  8. ISOSORBIDE (ISOSORBIDE) [Concomitant]
  9. NIFEDIPINE [Concomitant]
  10. LANSOPRAZOLE [Concomitant]
  11. ACETAMINOPHEN [Concomitant]
  12. CHLORPHENIRAMINE TAB [Concomitant]
  13. TINZAPARIN SODIUM (HEPARIN-FRACTION, SODIUM SALT) [Concomitant]
  14. MOVICOL (SODIUM BICARBONATE, POTASSIUM CHLORIDE, SODIUM. CHLORIDE, MAC [Concomitant]
  15. CYCLIZINE (CYCLIZINE) [Concomitant]
  16. TRAMADOL HCL [Concomitant]
  17. CELECOXIB (CELECOXIB) [Concomitant]
  18. LACTULOSE [Concomitant]

REACTIONS (2)
  - PHOTOPSIA [None]
  - VISION BLURRED [None]
